FAERS Safety Report 6671693-3 (Version None)
Quarter: 2010Q2

REPORT INFORMATION
  Report Type: 
  Country: None (occurrence: None)
  Receive Date: 20100407
  Receipt Date: 20100402
  Transmission Date: 20101027
  Serious: Yes (Death, Hospitalization, Other)
  Sender: FDA-Public Use
  Company Number: US-TEVA-229724USA

PATIENT
  Sex: Female

DRUGS (3)
  1. MEDROXYPROGESTERONE [Suspect]
     Dates: start: 19880601, end: 20011201
  2. ESTROGENS CONJUGATED [Suspect]
     Dates: start: 19880601, end: 20011201
  3. MEDROXYPROGESTERONE ACETATE [Suspect]
     Dates: start: 19880601, end: 20011201

REACTIONS (1)
  - BREAST CANCER METASTATIC [None]
